FAERS Safety Report 21230725 (Version 1)
Quarter: 2022Q3

REPORT INFORMATION
  Report Type: Spontaneous
  Country: US (occurrence: US)
  Receive Date: 20220819
  Receipt Date: 20220819
  Transmission Date: 20221027
  Serious: No
  Sender: FDA-Public Use
  Company Number: US-TOLMAR, INC.-22US036013

PATIENT
  Sex: Male

DRUGS (3)
  1. KETOCONAZOLE [Suspect]
     Active Substance: KETOCONAZOLE
     Indication: Alopecia
     Dosage: UNK
  2. OLANZAPINE [Concomitant]
     Active Substance: OLANZAPINE
     Indication: Psychiatric symptom
     Dosage: UNK
     Route: 048
  3. DEPAKOTE [Concomitant]
     Active Substance: DIVALPROEX SODIUM
     Indication: Dandruff
     Dosage: UNK
     Route: 048

REACTIONS (2)
  - Dandruff [Unknown]
  - Off label use [None]
